FAERS Safety Report 23868112 (Version 1)
Quarter: 2024Q2

REPORT INFORMATION
  Report Type: Spontaneous
  Country: IT (occurrence: IT)
  Receive Date: 20240517
  Receipt Date: 20240517
  Transmission Date: 20240716
  Serious: Yes (Hospitalization)
  Sender: FDA-Public Use
  Company Number: None

PATIENT
  Age: 12 Year
  Sex: Male

DRUGS (1)
  1. IFOSFAMIDE [Suspect]
     Active Substance: IFOSFAMIDE
     Indication: Osteosarcoma recurrent
     Dosage: 1 GRAM M2/DAY FOR 14 DAYS. BODY SURFACE AREA=0.97 M2
     Route: 042
     Dates: start: 20240415, end: 20240422

REACTIONS (3)
  - Neurological symptom [Recovering/Resolving]
  - Toxicity to various agents [Recovering/Resolving]
  - Myoclonus [Recovering/Resolving]

NARRATIVE: CASE EVENT DATE: 20240422
